FAERS Safety Report 19184995 (Version 2)
Quarter: 2021Q2

REPORT INFORMATION
  Report Type: Spontaneous
  Country: CA (occurrence: CA)
  Receive Date: 20210427
  Receipt Date: 20210604
  Transmission Date: 20210717
  Serious: Yes (Hospitalization)
  Sender: FDA-Public Use
  Company Number: CA-PFIZER INC-2021350589

PATIENT
  Sex: Male

DRUGS (1)
  1. DILANTIN [Suspect]
     Active Substance: PHENYTOIN
     Indication: EPILEPSY
     Dosage: UNK

REACTIONS (7)
  - Urinary tract infection [Unknown]
  - Drug level increased [Unknown]
  - Pyelonephritis [Unknown]
  - Pneumonia [Unknown]
  - Drug interaction [Unknown]
  - General physical health deterioration [Unknown]
  - Cystitis [Unknown]
